FAERS Safety Report 7513409-4 (Version None)
Quarter: 2011Q2

REPORT INFORMATION
  Report Type: 
  Country: None (occurrence: None)
  Receive Date: 20110531
  Receipt Date: 20110517
  Transmission Date: 20111010
  Serious: Yes (Other)
  Sender: FDA-Public Use
  Company Number: US-UCBSA-031603

PATIENT
  Sex: Female
  Weight: 96 kg

DRUGS (6)
  1. QUESTRAN [Concomitant]
  2. CIMZIA [Suspect]
     Indication: CROHN'S DISEASE
     Route: 058
     Dates: start: 20110311
  3. HYOSCYAMINE [Concomitant]
  4. PREVACID [Concomitant]
  5. CELEBREX [Concomitant]
  6. WELLBUTRIN [Concomitant]

REACTIONS (4)
  - FATIGUE [None]
  - URTICARIA [None]
  - ABDOMINAL PAIN UPPER [None]
  - ARTHRALGIA [None]
